FAERS Safety Report 6712634-X (Version None)
Quarter: 2010Q2

REPORT INFORMATION
  Report Type: 
  Country: None (occurrence: None)
  Receive Date: 20100506
  Receipt Date: 20100426
  Transmission Date: 20101027
  Serious: Yes (Hospitalization, Disabling)
  Sender: FDA-Public Use
  Company Number: JP-JNJFOC-20091005904

PATIENT
  Sex: Female
  Weight: 52 kg

DRUGS (8)
  1. DOXORUBICIN HCL [Suspect]
     Indication: OVARIAN CANCER RECURRENT
     Route: 042
  2. DOXORUBICIN HCL [Suspect]
     Route: 042
  3. DOXORUBICIN HCL [Suspect]
     Route: 042
  4. DECADRON [Concomitant]
     Indication: NAUSEA
     Route: 048
  5. ZOFRAN [Concomitant]
     Indication: NAUSEA
     Route: 048
  6. NAUZELIN [Concomitant]
     Indication: NAUSEA
     Route: 048
  7. PELTAZON [Concomitant]
     Route: 048
  8. PARIET [Concomitant]
     Indication: NAUSEA
     Route: 048

REACTIONS (2)
  - ASCITES [None]
  - NAUSEA [None]
